FAERS Safety Report 7136095-4 (Version None)
Quarter: 2010Q4

REPORT INFORMATION
  Report Type: 
  Country: None (occurrence: None)
  Receive Date: 20101204
  Receipt Date: 20101124
  Transmission Date: 20110411
  Serious: Yes (Life-Threatening, Hospitalization)
  Sender: FDA-Public Use
  Company Number: FR-BAYER-2010-000551

PATIENT

DRUGS (7)
  1. NAPROXEN SODIUM [Suspect]
     Indication: PRODUCT USED FOR UNKNOWN INDICATION
     Dosage: 550 MG, QD
     Route: 048
     Dates: start: 20101012, end: 20101014
  2. FOZITEC [Concomitant]
     Dosage: UNK
     Dates: end: 20101014
  3. LASILIX [Concomitant]
  4. CALPEROS D3 [Concomitant]
  5. ASCORBIC ACID/HESPERIDIN/RUSCUS ACULEATUS [Concomitant]
  6. DIFFU K [Concomitant]
  7. PARIET [Concomitant]

REACTIONS (3)
  - GASTROINTESTINAL HAEMORRHAGE [None]
  - HAEMATEMESIS [None]
  - RENAL FAILURE [None]
